FAERS Safety Report 22633292 (Version 1)
Quarter: 2023Q2

REPORT INFORMATION
  Report Type: Report from Study
  Country: FI (occurrence: FI)
  Receive Date: 20230623
  Receipt Date: 20230623
  Transmission Date: 20230722
  Serious: Yes (Other)
  Sender: FDA-Public Use
  Company Number: FI-TILLOTTSAB-20230276

PATIENT
  Age: 35 Year

DRUGS (2)
  1. ASACOL [Suspect]
     Active Substance: MESALAMINE
     Indication: Product used for unknown indication
     Dosage: STRENGTH 800MG
     Route: 048
  2. Thiopurines [Concomitant]
     Indication: Product used for unknown indication

REACTIONS (2)
  - Epstein-Barr virus infection reactivation [Unknown]
  - Diarrhoea [Unknown]
